FAERS Safety Report 22541327 (Version 2)
Quarter: 2023Q2

REPORT INFORMATION
  Report Type: Spontaneous
  Country: US (occurrence: US)
  Receive Date: 20230609
  Receipt Date: 20230620
  Transmission Date: 20230722
  Serious: No
  Sender: FDA-Public Use
  Company Number: US-PFIZER INC-US-GBT-015198

PATIENT
  Age: 7 Year
  Sex: Female

DRUGS (2)
  1. OXBRYTA [Suspect]
     Active Substance: VOXELOTOR
     Indication: Sickle cell disease
     Dosage: 900 MG, 1X/DAY
     Route: 048
     Dates: start: 202208
  2. OXBRYTA [Suspect]
     Active Substance: VOXELOTOR
     Dosage: 300 MG, 3X/DAY
     Route: 048

REACTIONS (5)
  - Diarrhoea [Recovered/Resolved]
  - Abdominal pain [Recovered/Resolved]
  - Intentional product misuse [Unknown]
  - Intentional product use issue [Unknown]
  - Abdominal pain upper [Recovered/Resolved]
